FAERS Safety Report 9411028 (Version 1)
Quarter: 2013Q3

REPORT INFORMATION
  Report Type: Spontaneous
  Country: CA (occurrence: CA)
  Receive Date: 20130719
  Receipt Date: 20130719
  Transmission Date: 20140515
  Serious: No
  Sender: FDA-Public Use
  Company Number: CA-TEVA-418733USA

PATIENT
  Age: 20 Year
  Sex: Female

DRUGS (1)
  1. PLAN B ONE-STEP [Suspect]
     Indication: CONTRACEPTION
     Dosage: 2 TB (2X0.75MG)
     Route: 048
     Dates: start: 20130702, end: 20130702

REACTIONS (1)
  - Metrorrhagia [Not Recovered/Not Resolved]
